FAERS Safety Report 10208297 (Version 1)
Quarter: 2014Q2

REPORT INFORMATION
  Report Type: Spontaneous
  Country: US (occurrence: None)
  Receive Date: 20140529
  Receipt Date: 20140529
  Transmission Date: 20141212
  Serious: Yes (Hospitalization)
  Sender: FDA-Public Use
  Company Number: None

PATIENT
  Age: 14 Year
  Sex: Female
  Weight: 76.2 kg

DRUGS (1)
  1. TOPIRAMATE GENERIC [Suspect]

REACTIONS (3)
  - Convulsion [None]
  - Diarrhoea [None]
  - Product substitution issue [None]
